FAERS Safety Report 21504700 (Version 2)
Quarter: 2022Q4

REPORT INFORMATION
  Report Type: Report from Study
  Country: US (occurrence: US)
  Receive Date: 20221025
  Receipt Date: 20221028
  Transmission Date: 20230113
  Serious: Yes (Hospitalization)
  Sender: FDA-Public Use
  Company Number: US-JNJFOC-20221018086

PATIENT
  Age: 72 Year
  Sex: Male
  Weight: 85.3 kg

DRUGS (2)
  1. APALUTAMIDE [Suspect]
     Active Substance: APALUTAMIDE
     Indication: Prostate cancer
     Dosage: THE MOST RECENT DOSE WAS 31-AUG-2022
     Route: 065
     Dates: start: 20220829
  2. LEUPROLIDE ACETATE [Concomitant]
     Active Substance: LEUPROLIDE ACETATE
     Dates: start: 20220824

REACTIONS (3)
  - Hyponatraemia [Recovering/Resolving]
  - Sepsis [Recovering/Resolving]
  - Abdominal wall abscess [Recovering/Resolving]

NARRATIVE: CASE EVENT DATE: 20220831
